FAERS Safety Report 7133708-8 (Version None)
Quarter: 2010Q4

REPORT INFORMATION
  Report Type: 
  Country: None (occurrence: None)
  Receive Date: 20101202
  Receipt Date: 20100511
  Transmission Date: 20110411
  Serious: Yes (Other)
  Sender: FDA-Public Use
  Company Number: US-RANBAXY-2010US-33787

PATIENT

DRUGS (3)
  1. CETIRIZINE HCL [Suspect]
     Indication: UPPER-AIRWAY COUGH SYNDROME
     Dosage: 5 ML, QD
     Route: 048
     Dates: start: 20090923, end: 20090928
  2. CETIRIZINE HCL [Suspect]
     Indication: HYPERSENSITIVITY
  3. MULTI-VITAMIN [Concomitant]
     Indication: PRODUCT USED FOR UNKNOWN INDICATION
     Dosage: UNK
     Route: 065

REACTIONS (5)
  - ABNORMAL BEHAVIOUR [None]
  - BONE PAIN [None]
  - DYSKINESIA [None]
  - TIC [None]
  - TORTICOLLIS [None]
